FAERS Safety Report 6194932-4 (Version None)
Quarter: 2009Q2

REPORT INFORMATION
  Report Type: 
  Country: None (occurrence: None)
  Receive Date: 20090515
  Receipt Date: 20090515
  Transmission Date: 20091009
  Serious: Yes (Disabling)
  Sender: FDA-Public Use
  Company Number: None

PATIENT
  Age: 47 Year
  Sex: Female

DRUGS (1)
  1. FERRLECIT [Suspect]
     Indication: IRON DEFICIENCY ANAEMIA
     Dosage: 250MG ONCE IV DRIP
     Route: 041
     Dates: start: 20090427, end: 20090427

REACTIONS (8)
  - BLOOD GLUCOSE INCREASED [None]
  - COLD SWEAT [None]
  - ERYTHEMA [None]
  - HYPOAESTHESIA [None]
  - MALAISE [None]
  - OEDEMA PERIPHERAL [None]
  - PAIN IN EXTREMITY [None]
  - SKIN WARM [None]
